FAERS Safety Report 7610343-6 (Version None)
Quarter: 2011Q3

REPORT INFORMATION
  Report Type: 
  Country: None (occurrence: None)
  Receive Date: 20110707
  Receipt Date: 20110427
  Transmission Date: 20111222
  Serious: Yes (Other)
  Sender: FDA-Public Use
  Company Number: SIM_00060_2011

PATIENT
  Age: 3 Year
  Sex: Female

DRUGS (1)
  1. KIDS COLD AND MUCUS RELIEF (HOMEOPATHIC) [Suspect]
     Indication: COUGH
     Dosage: (DEF ORAL)
     Route: 048
     Dates: start: 20110426, end: 20110427

REACTIONS (1)
  - WHEEZING [None]
